FAERS Safety Report 17220640 (Version 1)
Quarter: 2019Q4

REPORT INFORMATION
  Report Type: Report from Study
  Country: US (occurrence: US)
  Receive Date: 20191231
  Receipt Date: 20191231
  Transmission Date: 20200122
  Serious: Yes (Hospitalization)
  Sender: FDA-Public Use
  Company Number: US-ACTELION-A-NJ2018-176075

PATIENT
  Age: 61 Year
  Sex: Female
  Weight: 58.96 kg

DRUGS (9)
  1. OPSUMIT [Suspect]
     Active Substance: MACITENTAN
     Indication: PULMONARY ARTERIAL HYPERTENSION
     Dosage: 10 MG, QD
     Route: 048
     Dates: start: 20140618
  2. METOPROLOL. [Concomitant]
     Active Substance: METOPROLOL
     Indication: ARRHYTHMIA
     Dosage: UNK
     Dates: start: 20180717
  3. PREDNISONE. [Concomitant]
     Active Substance: PREDNISONE
  4. AMIODARONE [Concomitant]
     Active Substance: AMIODARONE
  5. DOXYCYCLINE. [Concomitant]
     Active Substance: DOXYCYCLINE
  6. IPRATROPIUM [Concomitant]
     Active Substance: IPRATROPIUM
  7. FUROSEMIDE. [Concomitant]
     Active Substance: FUROSEMIDE
  8. SILDENAFIL. [Concomitant]
     Active Substance: SILDENAFIL
  9. WARFARIN [Concomitant]
     Active Substance: WARFARIN

REACTIONS (6)
  - Respiratory disorder [Unknown]
  - Unevaluable event [Unknown]
  - Cough [Unknown]
  - Pneumonia [Unknown]
  - Arrhythmia [Unknown]
  - Bronchitis [Unknown]

NARRATIVE: CASE EVENT DATE: 201907
